FAERS Safety Report 7227554-4 (Version None)
Quarter: 2011Q1

REPORT INFORMATION
  Report Type: 
  Country: None (occurrence: None)
  Receive Date: 20110105
  Receipt Date: 20101220
  Transmission Date: 20110831
  Serious: Yes (Hospitalization)
  Sender: FDA-Public Use
  Company Number: WAES 1012USA03581

PATIENT
  Sex: Female

DRUGS (3)
  1. ISENTRESS [Suspect]
     Indication: HIV INFECTION
     Dosage: PO
     Route: 048
     Dates: start: 20100723
  2. ALUVIA (LOPINAVIR (+) RITONAVIR) [Suspect]
     Indication: HIV INFECTION
     Dates: start: 20100723
  3. FLUCONAZOLE [Concomitant]

REACTIONS (4)
  - HEADACHE [None]
  - PHOTOPHOBIA [None]
  - MENINGITIS CRYPTOCOCCAL [None]
  - MUSCULOSKELETAL STIFFNESS [None]
